FAERS Safety Report 8493322 (Version 3)
Quarter: 2013Q1

REPORT INFORMATION
  Report Type: Spontaneous
  Country: DK (occurrence: None)
  Receive Date: 20120328
  Receipt Date: 20130116
  Transmission Date: 20140127
  Serious: Yes (Death)
  Sender: FDA-Public Use
  Company Number: 2012MA003709

PATIENT
  Age: 44 Year
  Sex: Female

DRUGS (7)
  1. DIAZEPAM [Suspect]
     Indication: PRODUCT USED FOR UNKNOWN INDICATION
  2. AMITRIPTYLINE HYDROCHLORIDE [Suspect]
     Indication: PAIN
     Dosage: 25 MG; PO
     Route: 048
  3. PEGASYS [Suspect]
     Indication: HEPATITIS C
     Dosage: 180 MG; QW; SQ
     Route: 058
     Dates: start: 20110209
  4. COPEGUS [Suspect]
     Indication: HEPATITIS C
     Dosage: 400 MG; BID
     Route: 048
     Dates: start: 20110209
  5. METHADONE HYDROCHLORIDE [Suspect]
     Indication: DRUG DEPENDENCE
     Dosage: PO
     Route: 048
  6. DICLOFENAC [Concomitant]
  7. ALBUTEROL [Concomitant]

REACTIONS (1)
  - Toxicity to various agents [None]
